FAERS Safety Report 15811784 (Version 8)
Quarter: 2020Q1

REPORT INFORMATION
  Report Type: Report from Study
  Country: CA (occurrence: CA)
  Receive Date: 20190111
  Receipt Date: 20200125
  Transmission Date: 20200409
  Serious: Yes (Other)
  Sender: FDA-Public Use
  Company Number: CA-TAKEDA-2018TUS020465

PATIENT
  Age: 24 Year
  Sex: Female

DRUGS (7)
  1. VEDOLIZUMAB [Suspect]
     Active Substance: VEDOLIZUMAB
     Dosage: 300 MILLIGRAM, Q4WEEKS
     Route: 042
     Dates: start: 20190801
  2. VEDOLIZUMAB [Suspect]
     Active Substance: VEDOLIZUMAB
     Dosage: 300 MILLIGRAM
     Route: 042
     Dates: start: 20180719
  3. PENTASA [Concomitant]
     Active Substance: MESALAMINE
     Dosage: 4 GRAM, QD
  4. DOMPERIDONE [Concomitant]
     Active Substance: DOMPERIDONE
     Dosage: 10 MILLIGRAM, TID
  5. ESOMEPRAZOLE. [Concomitant]
     Active Substance: ESOMEPRAZOLE MAGNESIUM
     Dosage: 40 MILLIGRAM, QD
  6. VEDOLIZUMAB [Suspect]
     Active Substance: VEDOLIZUMAB
     Indication: CROHN^S DISEASE
     Dosage: 300 MILLIGRAM
     Route: 042
     Dates: start: 20170404
  7. NEXIUM [Concomitant]
     Active Substance: ESOMEPRAZOLE MAGNESIUM
     Dosage: 40 MILLIGRAM, QD

REACTIONS (10)
  - Diarrhoea [Unknown]
  - Constipation [Not Recovered/Not Resolved]
  - Therapeutic reaction time decreased [Unknown]
  - Vomiting [Unknown]
  - Abdominal discomfort [Not Recovered/Not Resolved]
  - Abdominal pain [Unknown]
  - Off label use [Unknown]
  - Ligament operation [Unknown]
  - Iron deficiency [Not Recovered/Not Resolved]
  - Abdominal distension [Unknown]

NARRATIVE: CASE EVENT DATE: 20180719
